FAERS Safety Report 6692785-9 (Version None)
Quarter: 2010Q2

REPORT INFORMATION
  Report Type: 
  Country: None (occurrence: None)
  Receive Date: 20100422
  Receipt Date: 20100415
  Transmission Date: 20101027
  Serious: Yes (Death, Hospitalization, Other)
  Sender: FDA-Public Use
  Company Number: DE-NOVOPROD-278890

PATIENT
  Sex: Male
  Weight: 79 kg

DRUGS (12)
  1. NOVONORM [Suspect]
     Indication: TYPE 2 DIABETES MELLITUS
     Dosage: UNK, PRN
     Route: 048
     Dates: start: 20080102, end: 20080122
  2. AVELOX [Suspect]
     Indication: PNEUMONIA
     Dosage: 400 MG, QD
     Route: 048
     Dates: start: 20080110, end: 20080117
  3. AVELOX [Suspect]
     Dosage: 1 UNK, QD
     Route: 042
     Dates: start: 20080108, end: 20080108
  4. DIFLUCAN [Suspect]
     Indication: OESOPHAGEAL CANDIDIASIS
     Dosage: UNK CAPS, PRN
     Dates: start: 20071228, end: 20080122
  5. NEXIUM [Suspect]
     Dosage: UNK, PRN
     Route: 048
     Dates: start: 20071222, end: 20071224
  6. NEXIUM [Suspect]
     Dosage: UNK MG, BID
     Route: 042
     Dates: start: 20071225, end: 20071226
  7. NEXIUM [Suspect]
     Dosage: UNK, PRN
     Route: 048
     Dates: start: 20071227, end: 20080122
  8. DECORTIN H [Concomitant]
     Dosage: UNK, PRN
     Route: 048
     Dates: start: 20071222, end: 20071224
  9. DECORTIN H [Concomitant]
     Dosage: UNK, PRN
     Route: 048
     Dates: start: 20071226, end: 20071231
  10. DECORTIN H [Concomitant]
     Dosage: UNK, PRN
     Route: 048
     Dates: start: 20080103
  11. BISOHEXAL                          /00802602/ [Concomitant]
     Dosage: UNK, PRN
     Route: 048
     Dates: start: 20071222, end: 20071224
  12. BISOHEXAL                          /00802602/ [Concomitant]
     Dosage: UNK, PRN
     Route: 048
     Dates: start: 20071227

REACTIONS (1)
  - HEPATITIS TOXIC [None]
